FAERS Safety Report 13993520 (Version 1)
Quarter: 2017Q3

REPORT INFORMATION
  Report Type: Spontaneous
  Country: AU (occurrence: AU)
  Receive Date: 20170920
  Receipt Date: 20170920
  Transmission Date: 20171128
  Serious: Yes (Hospitalization)
  Sender: FDA-Public Use
  Company Number: AU-ELI_LILLY_AND_COMPANY-AU201709004993

PATIENT
  Age: 13 Year
  Sex: Female
  Weight: 42 kg

DRUGS (2)
  1. HUMATROPE [Suspect]
     Active Substance: SOMATROPIN
     Indication: BODY HEIGHT BELOW NORMAL
     Dosage: 2.08 MG, 6/W
     Route: 058
     Dates: start: 20130312, end: 20170722
  2. ESTRADERM [Concomitant]
     Active Substance: ESTRADIOL
     Indication: DELAYED PUBERTY
     Dosage: 12.5 UG, EVERY 3 DAYS
     Route: 061
     Dates: start: 20151118

REACTIONS (2)
  - Sports injury [Recovering/Resolving]
  - Fractured ischium [Recovering/Resolving]

NARRATIVE: CASE EVENT DATE: 20170721
